FAERS Safety Report 17647067 (Version 1)
Quarter: 2020Q2

REPORT INFORMATION
  Report Type: Report from Study
  Country: US (occurrence: US)
  Receive Date: 20200408
  Receipt Date: 20200408
  Transmission Date: 20200713
  Serious: No
  Sender: FDA-Public Use
  Company Number: US-BIOVITRUM-2019US3228

PATIENT
  Age: 65 Year
  Sex: Male

DRUGS (2)
  1. KINERET [Suspect]
     Active Substance: ANAKINRA
     Indication: ERDHEIM-CHESTER DISEASE
     Route: 058
  2. KINERET [Suspect]
     Active Substance: ANAKINRA
     Indication: ARTHRALGIA
     Route: 058
     Dates: start: 20190807

REACTIONS (6)
  - Off label use [Unknown]
  - Inappropriate schedule of product administration [Unknown]
  - Confusional state [Unknown]
  - Pruritus [Unknown]
  - Rash macular [Unknown]
  - Injection site pain [Unknown]

NARRATIVE: CASE EVENT DATE: 20190807
